FAERS Safety Report 9893396 (Version 3)
Quarter: 2014Q2

REPORT INFORMATION
  Report Type: Spontaneous
  Country: IT (occurrence: IT)
  Receive Date: 20140213
  Receipt Date: 20140410
  Transmission Date: 20141212
  Serious: Yes (Life-Threatening, Hospitalization)
  Sender: FDA-Public Use
  Company Number: IT-ASTRAZENECA-2014SE09265

PATIENT
  Age: 17296 Day
  Sex: Male

DRUGS (9)
  1. SEROQUEL [Suspect]
     Indication: DRUG ABUSE
     Route: 048
  2. SEROQUEL [Suspect]
     Indication: DRUG ABUSE
     Dosage: 25 DF ONCE/SINGLE ADMINISTRATION
     Route: 048
     Dates: start: 20140128, end: 20140128
  3. SEROQUEL [Suspect]
     Indication: DRUG ABUSE
     Route: 048
     Dates: start: 20140205
  4. XANAX [Suspect]
     Indication: DRUG ABUSE
     Route: 048
  5. XANAX [Suspect]
     Indication: DRUG ABUSE
     Dosage: 0.75 MG/ML, 1.25 MG ONCE/SINGLE ADMINISTRATION, 50 GTT
     Route: 048
     Dates: start: 20140128, end: 20140128
  6. XANAX [Suspect]
     Indication: DRUG ABUSE
     Dosage: 20 TO DOSAGE FORM OF 20 DROPS DAILY
     Route: 048
     Dates: start: 20140205
  7. FELISON [Concomitant]
     Indication: DEPRESSION
     Route: 048
  8. CARBOLITHIUM [Concomitant]
     Indication: DEPRESSION
     Route: 048
  9. DEPAKIN [Concomitant]
     Indication: DEPRESSION
     Route: 048

REACTIONS (3)
  - Overdose [Recovered/Resolved]
  - Drug abuse [Recovered/Resolved]
  - Sopor [Recovered/Resolved]
